FAERS Safety Report 6274444-X (Version None)
Quarter: 2009Q3

REPORT INFORMATION
  Report Type: 
  Country: None (occurrence: None)
  Receive Date: 20090716
  Receipt Date: 20090709
  Transmission Date: 20100115
  Serious: Yes (Hospitalization)
  Sender: FDA-Public Use
  Company Number: US-2009-00184

PATIENT
  Age: 17 Year
  Sex: Female
  Weight: 50 kg

DRUGS (1)
  1. LEVETIRACETAM [Suspect]
     Dosage: EVENTS BEGAN AFTER 8 DAYS OF TREATMENT
     Route: 048

REACTIONS (12)
  - ABDOMINAL PAIN [None]
  - BLOOD CREATININE INCREASED [None]
  - DIARRHOEA [None]
  - EOSINOPHILIA [None]
  - FATIGUE [None]
  - HYDRONEPHROSIS [None]
  - PALLOR [None]
  - PROTEIN URINE PRESENT [None]
  - RED BLOOD CELLS URINE POSITIVE [None]
  - SCAR [None]
  - VOMITING [None]
  - WHITE BLOOD CELLS URINE POSITIVE [None]
